FAERS Safety Report 12381538 (Version 2)
Quarter: 2016Q2

REPORT INFORMATION
  Report Type: Report from Study
  Country: SI (occurrence: SI)
  Receive Date: 20160518
  Receipt Date: 20160623
  Transmission Date: 20160815
  Serious: Yes (Hospitalization, Other)
  Sender: FDA-Public Use
  Company Number: SI-BAYER-2016-088127

PATIENT
  Age: 59 Year
  Sex: Male

DRUGS (7)
  1. NEXAVAR [Suspect]
     Active Substance: SORAFENIB
     Indication: HEPATOCELLULAR CARCINOMA
     Dosage: 200 MG, BID
     Route: 048
     Dates: start: 20160212
  2. LACIPIL [Concomitant]
     Active Substance: LACIDIPINE
     Dosage: 2 MG, UNK
  3. PANTOPRAZOLE [Concomitant]
     Active Substance: PANTOPRAZOLE SODIUM
     Dosage: 40 MG, BID
  4. KALINOR [Concomitant]
     Active Substance: POTASSIUM CITRATE
     Dosage: 1/2 TABLET
  5. PROPRANOLOL [Concomitant]
     Active Substance: PROPRANOLOL\PROPRANOLOL HYDROCHLORIDE
     Dosage: 20 MG, OM
  6. LACTULOSE. [Concomitant]
     Active Substance: LACTULOSE
  7. LASIX [Concomitant]
     Active Substance: FUROSEMIDE
     Dosage: 1 DF, UNK

REACTIONS (4)
  - Bile duct stone [Recovered/Resolved]
  - Bile duct stone [None]
  - Pancreatitis [Not Recovered/Not Resolved]
  - Abdominal pain [Not Recovered/Not Resolved]

NARRATIVE: CASE EVENT DATE: 20160422
